FAERS Safety Report 21177492 (Version 1)
Quarter: 2022Q3

REPORT INFORMATION
  Report Type: Spontaneous
  Country: US (occurrence: US)
  Receive Date: 20220805
  Receipt Date: 20220805
  Transmission Date: 20221027
  Serious: No
  Sender: FDA-Public Use
  Company Number: US-MYLANLABS-2022M1083208

PATIENT
  Age: 63 Year
  Sex: Female
  Weight: 45.36 kg

DRUGS (6)
  1. ESTRADIOL TRANSDERMAL SYSTEM [Suspect]
     Active Substance: ESTRADIOL
     Indication: Hysterectomy
     Dosage: UNK
     Route: 062
     Dates: start: 20220717
  2. BUSPIRONE [Concomitant]
     Active Substance: BUSPIRONE HYDROCHLORIDE
     Dosage: 10 MILLIGRAM, BID
     Route: 065
  3. PROZAC [Concomitant]
     Active Substance: FLUOXETINE HYDROCHLORIDE
     Dosage: 40 MILLIGRAM, BID
     Route: 065
  4. WELLBUTRIN [Concomitant]
     Active Substance: BUPROPION HYDROCHLORIDE
     Dosage: 150 MILLIGRAM, BID
     Route: 065
  5. ADVAIR HFA [Concomitant]
     Active Substance: FLUTICASONE PROPIONATE\SALMETEROL XINAFOATE
     Dosage: UNK, BID (100/50 MG TWICE DAILY)
     Route: 065
  6. ALBUTEROL SULFATE [Concomitant]
     Active Substance: ALBUTEROL SULFATE
     Dosage: UNK, BID (IF I HAD A BAD DAY)

REACTIONS (2)
  - Wrong technique in product usage process [Unknown]
  - Product adhesion issue [Unknown]

NARRATIVE: CASE EVENT DATE: 20220717
